FAERS Safety Report 9559391 (Version 1)
Quarter: 2013Q3

REPORT INFORMATION
  Report Type: Spontaneous
  Country: US (occurrence: None)
  Receive Date: 20130906
  Receipt Date: 20130906
  Transmission Date: 20140515
  Serious: No
  Sender: FDA-Public Use
  Company Number: 163-POMAL-13071170

PATIENT
  Age: 72 Year
  Sex: Female
  Weight: 82.1 kg

DRUGS (3)
  1. POMALYST [Suspect]
     Indication: PLASMA CELL MYELOMA
     Route: 048
     Dates: start: 201306
  2. DEXAMETHASONE [Concomitant]
  3. LIPITOR [Concomitant]

REACTIONS (9)
  - Stomatitis [None]
  - Glossodynia [None]
  - Stomatitis [None]
  - Vision blurred [None]
  - Pollakiuria [None]
  - Gingival bleeding [None]
  - Epistaxis [None]
  - Neuropathy peripheral [None]
  - Back pain [None]
